FAERS Safety Report 4396726-9 (Version None)
Quarter: 2004Q3

REPORT INFORMATION
  Report Type: 
  Country: None (occurrence: None)
  Receive Date: 20040713
  Receipt Date: 20040713
  Transmission Date: 20050211
  Serious: Yes (Hospitalization)
  Sender: FDA-Public Use
  Company Number: None

PATIENT
  Age: 52 Year
  Sex: Male
  Weight: 66.2 kg

DRUGS (1)
  1. BACTRIM [Suspect]
     Indication: INFECTION PROPHYLAXIS
     Dosage: DS Q12H, DS Q124, ORAL
     Route: 048
     Dates: start: 20040527, end: 20040601

REACTIONS (3)
  - ABDOMINAL PAIN [None]
  - DIARRHOEA [None]
  - EOSINOPHILIA [None]
